FAERS Safety Report 10205695 (Version 11)
Quarter: 2016Q2

REPORT INFORMATION
  Report Type: Spontaneous
  Country: CA (occurrence: CA)
  Receive Date: 20140530
  Receipt Date: 20160628
  Transmission Date: 20160815
  Serious: Yes (Other)
  Sender: FDA-Public Use
  Company Number: CA-ROCHE-1409404

PATIENT
  Age: 63 Year
  Sex: Female

DRUGS (6)
  1. XOLAIR [Suspect]
     Active Substance: OMALIZUMAB
     Route: 058
     Dates: start: 20140123
  2. XOLAIR [Suspect]
     Active Substance: OMALIZUMAB
     Route: 058
     Dates: start: 20140916
  3. XOLAIR [Suspect]
     Active Substance: OMALIZUMAB
     Route: 058
     Dates: start: 20141014
  4. XOLAIR [Suspect]
     Active Substance: OMALIZUMAB
     Route: 058
     Dates: start: 20160524
  5. XOLAIR [Suspect]
     Active Substance: OMALIZUMAB
     Indication: ASTHMA
     Route: 058
     Dates: start: 20131203
  6. XOLAIR [Suspect]
     Active Substance: OMALIZUMAB
     Route: 058
     Dates: start: 20141209

REACTIONS (19)
  - Influenza [Recovering/Resolving]
  - Middle insomnia [Unknown]
  - Dyspnoea [Unknown]
  - Nausea [Unknown]
  - Hypersensitivity [Unknown]
  - Blood pressure systolic increased [Unknown]
  - Dizziness [Unknown]
  - Asthma [Unknown]
  - Rhinorrhoea [Unknown]
  - Headache [Unknown]
  - Pneumonia [Recovered/Resolved]
  - Body temperature decreased [Unknown]
  - Decreased appetite [Unknown]
  - Depressed mood [Unknown]
  - Pyrexia [Unknown]
  - Back pain [Unknown]
  - Malaise [Unknown]
  - Alopecia [Unknown]
  - Sensitivity to weather change [Unknown]

NARRATIVE: CASE EVENT DATE: 20131217
